FAERS Safety Report 7562101-9 (Version None)
Quarter: 2011Q2

REPORT INFORMATION
  Report Type: 
  Country: None (occurrence: None)
  Receive Date: 20110622
  Receipt Date: 20110614
  Transmission Date: 20111010
  Serious: Yes (Hospitalization)
  Sender: FDA-Public Use
  Company Number: US-BIOGENIDEC-2008BI027149

PATIENT
  Age: 57 Year
  Sex: Female

DRUGS (5)
  1. AVONEX [Suspect]
     Indication: MULTIPLE SCLEROSIS
     Route: 030
     Dates: start: 19991008, end: 20080504
  2. AVONEX [Suspect]
     Route: 030
  3. AVONEX [Suspect]
     Route: 030
     Dates: start: 20080901
  4. COUMADIN [Concomitant]
     Dates: start: 20080101
  5. AVONEX [Suspect]
     Route: 030
     Dates: start: 20080525, end: 20080901

REACTIONS (7)
  - DEEP VEIN THROMBOSIS [None]
  - ALLERGY TO METALS [None]
  - DEVICE DISLOCATION [None]
  - FEMUR FRACTURE [None]
  - OSTEONECROSIS [None]
  - HIP ARTHROPLASTY [None]
  - FRACTURE NONUNION [None]
